FAERS Safety Report 14558691 (Version 1)
Quarter: 2018Q1

REPORT INFORMATION
  Report Type: Report from Study
  Country: US (occurrence: US)
  Receive Date: 20180221
  Receipt Date: 20180221
  Transmission Date: 20180509
  Serious: Yes (Hospitalization)
  Sender: FDA-Public Use
  Company Number: US-BIOMARINP-000734

PATIENT
  Age: 20 Year
  Sex: Male
  Weight: 24.5 kg

DRUGS (2)
  1. NAGLAZYME [Suspect]
     Active Substance: GALSULFASE
     Dosage: 1 MG/KG, QW
     Route: 042
     Dates: start: 20050812, end: 20090125
  2. NAGLAZYME [Suspect]
     Active Substance: GALSULFASE
     Indication: MUCOPOLYSACCHARIDOSIS VI
     Dosage: 1 MG/KG, QW
     Route: 041
     Dates: start: 20030828

REACTIONS (1)
  - Cervical cord compression [Recovered/Resolved]

NARRATIVE: CASE EVENT DATE: 20080721
